FAERS Safety Report 24062208 (Version 1)
Quarter: 2024Q3

REPORT INFORMATION
  Report Type: Spontaneous
  Country: US (occurrence: None)
  Receive Date: 20240708
  Receipt Date: 20240708
  Transmission Date: 20241016
  Serious: Yes (Hospitalization)
  Sender: Public
  Company Number: None

PATIENT
  Sex: Male

DRUGS (2)
  1. OPSUMIT [Suspect]
     Active Substance: MACITENTAN
     Indication: Pulmonary arterial hypertension
     Dosage: FREQUENCY : DAILY;?
     Route: 048
     Dates: start: 202105
  2. UPTRAVI [Suspect]
     Active Substance: SELEXIPAG

REACTIONS (7)
  - Paracentesis [None]
  - Joint swelling [None]
  - Migraine [None]
  - Nausea [None]
  - Insomnia [None]
  - Therapeutic product effect incomplete [None]
  - Abdominal distension [None]
